FAERS Safety Report 19597623 (Version 1)
Quarter: 2021Q3

REPORT INFORMATION
  Report Type: Other
  Country: US (occurrence: US)
  Receive Date: 20210722
  Receipt Date: 20210722
  Transmission Date: 20211014
  Serious: Yes (Other)
  Sender: FDA-Public Use
  Company Number: US-APOTEX-2021AP020830

PATIENT
  Age: 64 Year
  Sex: Male

DRUGS (1)
  1. RANITIDINE TABLETS [Suspect]
     Active Substance: RANITIDINE HYDROCHLORIDE
     Indication: DYSPEPSIA
     Dosage: OTHER (3?4X A WEEK)
     Route: 065
     Dates: start: 199501, end: 201909

REACTIONS (3)
  - Lung neoplasm malignant [Unknown]
  - Renal cancer [Unknown]
  - Leukaemia [Unknown]

NARRATIVE: CASE EVENT DATE: 20190501
